FAERS Safety Report 9241862 (Version 2)
Quarter: 2013Q2

REPORT INFORMATION
  Report Type: Spontaneous
  Country: US (occurrence: US)
  Receive Date: 20130419
  Receipt Date: 20130508
  Transmission Date: 20140414
  Serious: No
  Sender: FDA-Public Use
  Company Number: PHEH2013US008402

PATIENT
  Age: 8 Year
  Sex: Male
  Weight: 57 kg

DRUGS (3)
  1. FOCALIN XR [Suspect]
     Indication: ATTENTION DEFICIT/HYPERACTIVITY DISORDER
     Dosage: 5 MG, DAILY
     Route: 048
     Dates: start: 20130129, end: 20130415
  2. FISH OIL [Concomitant]
  3. MULTIVITAMIN//VITAMINS NOS [Concomitant]

REACTIONS (9)
  - Depression [Recovered/Resolved]
  - Stress [Recovered/Resolved]
  - Personality change [Recovered/Resolved]
  - Muscle twitching [Recovered/Resolved]
  - Emotional disorder [Recovered/Resolved]
  - Tongue disorder [Recovering/Resolving]
  - Psychomotor hyperactivity [Recovered/Resolved]
  - Tic [Recovered/Resolved]
  - Insomnia [Recovered/Resolved]
